FAERS Safety Report 7326394-5 (Version None)
Quarter: 2011Q1

REPORT INFORMATION
  Report Type: 
  Country: None (occurrence: None)
  Receive Date: 20110302
  Receipt Date: 20110222
  Transmission Date: 20110831
  Serious: Yes (Other)
  Sender: FDA-Public Use
  Company Number: US-BRISTOL-MYERS SQUIBB COMPANY-15570559

PATIENT

DRUGS (2)
  1. CADUET [Suspect]
     Dosage: FILM COATED TAB
  2. AVALIDE [Suspect]
     Dosage: 1 DF=300/12.5

REACTIONS (4)
  - SERUM FERRITIN INCREASED [None]
  - PORPHYRIA [None]
  - BLOOD TESTOSTERONE DECREASED [None]
  - TRANSAMINASES INCREASED [None]
